FAERS Safety Report 9291574 (Version 1)
Quarter: 2013Q2

REPORT INFORMATION
  Report Type: Spontaneous
  Country: US (occurrence: US)
  Receive Date: 20130515
  Receipt Date: 20130515
  Transmission Date: 20140414
  Serious: No
  Sender: FDA-Public Use
  Company Number: US-ASTRAZENECA-2013SE29938

PATIENT
  Age: 31 Year
  Sex: Male
  Weight: 92.5 kg

DRUGS (2)
  1. SEROQUEL XR [Suspect]
     Indication: BRONCHITIS CHRONIC
     Route: 048
     Dates: start: 20130425, end: 20130425
  2. KLONOPIN [Concomitant]
     Indication: BRONCHITIS CHRONIC
     Dosage: UNK UNK
     Route: 048

REACTIONS (5)
  - Chest pain [Recovered/Resolved]
  - Dehydration [Recovering/Resolving]
  - Dizziness [Recovered/Resolved]
  - Swollen tongue [Recovering/Resolving]
  - Off label use [Unknown]
